FAERS Safety Report 10246270 (Version 1)
Quarter: 2014Q2

REPORT INFORMATION
  Report Type: Spontaneous
  Country: IE (occurrence: IE)
  Receive Date: 20140619
  Receipt Date: 20140619
  Transmission Date: 20141212
  Serious: Yes (Death)
  Sender: FDA-Public Use
  Company Number: IE-AMGEN INC.-IRLSP2014044964

PATIENT
  Age: 80 Year
  Sex: Female

DRUGS (13)
  1. NEULASTA [Suspect]
     Indication: BREAST CANCER
     Dosage: 6MG/0.6MLS POST CHEMO EVERY THREE WEEKS
     Route: 058
     Dates: start: 20120523
  2. NEULASTA [Suspect]
     Indication: HEPATIC CANCER
  3. AMITRIPTYLINE [Concomitant]
     Dosage: UNK
  4. MAXOLON [Concomitant]
     Dosage: UNK
  5. CARBOPLATIN [Concomitant]
     Dosage: UNK
  6. ZOFRAN                             /00955301/ [Concomitant]
     Dosage: UNK
  7. ZOTON [Concomitant]
     Dosage: UNK
  8. ATENOLOL [Concomitant]
     Dosage: UNK
  9. DEXAMETHASONE [Concomitant]
     Dosage: UNK
  10. CALCICHEW [Concomitant]
     Dosage: UNK
  11. ZESTRIL [Concomitant]
     Dosage: UNK
  12. MYCOSTATIN [Concomitant]
     Dosage: UNK
  13. KIN [Concomitant]
     Dosage: UNK

REACTIONS (1)
  - Death [Fatal]
